FAERS Safety Report 25182743 (Version 1)
Quarter: 2025Q2

REPORT INFORMATION
  Report Type: Other
  Country: GB (occurrence: GB)
  Receive Date: 20250410
  Receipt Date: 20250410
  Transmission Date: 20250717
  Serious: Yes (Hospitalization, Other)
  Sender: ZYDUS PHARM
  Company Number: GB-BRISTOL-MYERS SQUIBB COMPANY-2025-041458

PATIENT

DRUGS (1)
  1. APIXABAN [Suspect]
     Active Substance: APIXABAN
     Indication: Cerebrovascular accident prophylaxis
     Route: 065

REACTIONS (4)
  - Pleural effusion [Unknown]
  - Pneumonia [Unknown]
  - Coagulopathy [Unknown]
  - Epistaxis [Recovered/Resolved]
